FAERS Safety Report 6054320-8 (Version None)
Quarter: 2009Q1

REPORT INFORMATION
  Report Type: 
  Country: None (occurrence: None)
  Receive Date: 20090127
  Receipt Date: 20090121
  Transmission Date: 20090719
  Serious: Yes (Hospitalization, Other)
  Sender: FDA-Public Use
  Company Number: US-ABBOTT-09P-163-0499184-00

PATIENT
  Sex: Female
  Weight: 54.48 kg

DRUGS (12)
  1. HUMIRA [Suspect]
     Indication: RHEUMATOID ARTHRITIS
     Dates: start: 20060701, end: 20071001
  2. HUMIRA [Suspect]
     Dates: start: 20071001, end: 20081001
  3. ALEVE [Suspect]
     Indication: PAIN
     Dates: start: 20070101
  4. PLAVIX [Concomitant]
     Indication: DRUG USE FOR UNKNOWN INDICATION
  5. COREG [Concomitant]
     Indication: BLOOD PRESSURE
     Route: 048
  6. LOVOXYL [Concomitant]
     Indication: DRUG USE FOR UNKNOWN INDICATION
  7. ZOCOR [Concomitant]
     Indication: DRUG USE FOR UNKNOWN INDICATION
  8. ULTRAM [Concomitant]
     Indication: DRUG USE FOR UNKNOWN INDICATION
     Dosage: PRN EVERY 6-8 HRS
     Route: 048
  9. NEURONTIN [Concomitant]
     Indication: PAIN
     Route: 048
  10. PREDNISONE [Concomitant]
     Indication: RHEUMATOID ARTHRITIS
     Dosage: PRN
  11. INSULIN NPH/R [Concomitant]
     Indication: DRUG USE FOR UNKNOWN INDICATION
     Dosage: 35 U N AND R ON SLIDING SCALE.  DEPENDS ON BLOOD READINGS
     Route: 058
  12. HUMIRA [Concomitant]
     Indication: RHEUMATOID ARTHRITIS
     Dosage: NOT REPORTED
     Dates: start: 20071001

REACTIONS (6)
  - CARDIOGENIC SHOCK [None]
  - HAEMOLYTIC ANAEMIA [None]
  - HYPOTENSION [None]
  - MYOCARDIAL INFARCTION [None]
  - PNEUMONIA [None]
  - RHEUMATOID ARTHRITIS [None]
